FAERS Safety Report 21719486 (Version 1)
Quarter: 2022Q4

REPORT INFORMATION
  Report Type: Spontaneous
  Country: US (occurrence: US)
  Receive Date: 20221213
  Receipt Date: 20221213
  Transmission Date: 20230113
  Serious: No
  Sender: FDA-Public Use
  Company Number: US-SA-SAC20221209000364

PATIENT
  Sex: Female

DRUGS (24)
  1. DUPIXENT [Suspect]
     Active Substance: DUPILUMAB
     Indication: Dermatitis atopic
     Dosage: 300 MG, QOW
     Route: 058
     Dates: start: 20220913
  2. ATORVASTATIN [Concomitant]
     Active Substance: ATORVASTATIN
  3. AZITHROMYCIN [Concomitant]
     Active Substance: AZITHROMYCIN
  4. BENZONATATE [Concomitant]
     Active Substance: BENZONATATE
  5. ACETAMINOPHEN\BUTALBITAL\CAFFEINE [Concomitant]
     Active Substance: ACETAMINOPHEN\BUTALBITAL\CAFFEINE
  6. CANDESARTAN [Concomitant]
     Active Substance: CANDESARTAN
     Indication: Hypertension
  7. CELECOXIB [Concomitant]
     Active Substance: CELECOXIB
  8. CLONAZEPAM [Concomitant]
     Active Substance: CLONAZEPAM
  9. ESTRING [Concomitant]
     Active Substance: ESTRADIOL
  10. ESZOPICLONE [Concomitant]
     Active Substance: ESZOPICLONE
     Dosage: 1 MG
  11. ESZOPICLONE [Concomitant]
     Active Substance: ESZOPICLONE
     Dosage: 3 MG
  12. EVAMIST [Concomitant]
     Active Substance: ESTRADIOL
  13. EZETIMIBE [Concomitant]
     Active Substance: EZETIMIBE
  14. MOMETASONE [Concomitant]
     Active Substance: MOMETASONE
  15. MONTELUKAST [Concomitant]
     Active Substance: MONTELUKAST SODIUM
  16. ONDANSETRON [Concomitant]
     Active Substance: ONDANSETRON
  17. RESTASIS [Concomitant]
     Active Substance: CYCLOSPORINE
  18. TACROLIMUS [Concomitant]
     Active Substance: TACROLIMUS
  19. TOPIRAMATE [Concomitant]
     Active Substance: TOPIRAMATE
  20. TRINTELLIX [Concomitant]
     Active Substance: VORTIOXETINE HYDROBROMIDE
  21. TRIAMCINOLONE [Concomitant]
     Active Substance: TRIAMCINOLONE
  22. METHOCARBAMOL [Concomitant]
     Active Substance: METHOCARBAMOL
  23. METHYLPREDNISOLONE [Concomitant]
     Active Substance: METHYLPREDNISOLONE
  24. AMITRIPTYLINE [Concomitant]
     Active Substance: AMITRIPTYLINE

REACTIONS (3)
  - Constipation [Unknown]
  - Dermatitis atopic [Unknown]
  - Drug ineffective [Unknown]
